FAERS Safety Report 18395492 (Version 1)
Quarter: 2020Q4

REPORT INFORMATION
  Report Type: Spontaneous
  Country: ES (occurrence: ES)
  Receive Date: 20201017
  Receipt Date: 20201017
  Transmission Date: 20210114
  Serious: Yes (Other)
  Sender: FDA-Public Use
  Company Number: ES-AMGEN-ESPSP2020167469

PATIENT
  Age: 48 Year
  Sex: Female

DRUGS (1)
  1. AIMOVIG [Suspect]
     Active Substance: ERENUMAB-AOOE
     Indication: MIGRAINE
     Dosage: 140 MG, QMO
     Route: 058
     Dates: start: 20200504, end: 20200604

REACTIONS (4)
  - Abdominal distension [Recovered/Resolved]
  - Constipation [Recovered/Resolved]
  - Rectal tenesmus [Recovered/Resolved]
  - Temperature regulation disorder [Recovered/Resolved]

NARRATIVE: CASE EVENT DATE: 202006
